FAERS Safety Report 19735097 (Version 2)
Quarter: 2021Q4

REPORT INFORMATION
  Report Type: Spontaneous
  Country: US (occurrence: US)
  Receive Date: 20210823
  Receipt Date: 20211004
  Transmission Date: 20220304
  Serious: No
  Sender: FDA-Public Use
  Company Number: 2021A648818

PATIENT
  Age: 25066 Day
  Sex: Female
  Weight: 80.7 kg

DRUGS (1)
  1. BYDUREON BCISE [Suspect]
     Active Substance: EXENATIDE
     Indication: Blood glucose increased
     Dosage: 2MG/ML ONCE A WEEK
     Route: 058
     Dates: start: 202102

REACTIONS (5)
  - Injection site haemorrhage [Unknown]
  - Needle issue [Unknown]
  - Drug delivery system issue [Unknown]
  - Device malfunction [Unknown]
  - Needle issue [Unknown]

NARRATIVE: CASE EVENT DATE: 20210707
